FAERS Safety Report 10350417 (Version 1)
Quarter: 2014Q3

REPORT INFORMATION
  Report Type: Report from Study
  Country: US (occurrence: US)
  Receive Date: 20140730
  Receipt Date: 20140730
  Transmission Date: 20150326
  Serious: No
  Sender: FDA-Public Use
  Company Number: US-ABBVIE-13P-163-1127724-00

PATIENT
  Sex: Male
  Weight: 87.17 kg

DRUGS (3)
  1. ASPIRIN. [Concomitant]
     Active Substance: ASPIRIN
     Indication: PRODUCT USED FOR UNKNOWN INDICATION
     Dosage: PRIOR TO NIASPAN DOSE
     Route: 048
  2. NIASPAN [Suspect]
     Active Substance: NIACIN
     Indication: HIGH DENSITY LIPOPROTEIN DECREASED
     Dosage: AT BEDTIME
     Route: 048
  3. NIASPAN [Suspect]
     Active Substance: NIACIN
     Indication: LOW DENSITY LIPOPROTEIN INCREASED

REACTIONS (1)
  - Headache [Recovered/Resolved]
